FAERS Safety Report 7486893-2 (Version None)
Quarter: 2011Q2

REPORT INFORMATION
  Report Type: 
  Country: None (occurrence: None)
  Receive Date: 20110517
  Receipt Date: 20101104
  Transmission Date: 20111010
  Serious: Yes (Other)
  Sender: FDA-Public Use
  Company Number: DE-GENENTECH-318575

PATIENT
  Age: 82 Year
  Sex: Female

DRUGS (2)
  1. UNSPECIFIED MEDICATION [Concomitant]
     Indication: CARDIAC DISORDER
     Dosage: UNK
  2. LUCENTIS [Suspect]
     Indication: MACULAR DEGENERATION
     Dosage: UNK
     Route: 031

REACTIONS (2)
  - EYE HAEMORRHAGE [None]
  - INAPPROPRIATE SCHEDULE OF DRUG ADMINISTRATION [None]
